FAERS Safety Report 6828139-1 (Version None)
Quarter: 2010Q3

REPORT INFORMATION
  Report Type: 
  Country: None (occurrence: None)
  Receive Date: 20100709
  Receipt Date: 20070129
  Transmission Date: 20110219
  Serious: No
  Sender: FDA-Public Use
  Company Number: US-PFIZER INC-2007008876

PATIENT
  Sex: Male
  Weight: 90.72 kg

DRUGS (4)
  1. CHANTIX [Suspect]
     Indication: SMOKING CESSATION THERAPY
     Dates: start: 20070112
  2. UROXATRAL [Concomitant]
     Indication: PROSTATOMEGALY
  3. FIBRE, DIETARY [Concomitant]
  4. VITAMINS [Concomitant]

REACTIONS (2)
  - HEADACHE [None]
  - NAUSEA [None]
